FAERS Safety Report 5064193-8 (Version None)
Quarter: 2006Q3

REPORT INFORMATION
  Report Type: 
  Country: None (occurrence: None)
  Receive Date: 20060728
  Receipt Date: 20050812
  Transmission Date: 20061208
  Serious: No
  Sender: FDA-Public Use
  Company Number: US-GLAXOSMITHKLINE-A0570065A

PATIENT
  Age: 52 Year
  Sex: Female

DRUGS (1)
  1. ZANTAC [Suspect]
     Dosage: 300MG PER DAY
     Route: 048

REACTIONS (9)
  - DIZZINESS [None]
  - DYSPHAGIA [None]
  - FACE OEDEMA [None]
  - HYPERSENSITIVITY [None]
  - INTRANASAL NUMBNESS [None]
  - NAUSEA [None]
  - PARAESTHESIA [None]
  - PARAESTHESIA ORAL [None]
  - TINNITUS [None]
